FAERS Safety Report 23863414 (Version 4)
Quarter: 2025Q3

REPORT INFORMATION
  Report Type: Spontaneous
  Country: EU (occurrence: EU)
  Receive Date: 20240516
  Receipt Date: 20250703
  Transmission Date: 20251021
  Serious: Yes (Other)
  Sender: ADVANZ PHARMA
  Company Number: None

PATIENT

DRUGS (5)
  1. ZONISAMIDE [Suspect]
     Active Substance: ZONISAMIDE
     Indication: Epilepsy
     Route: 048
     Dates: start: 20240213
  2. IRBESARTAN [Concomitant]
     Active Substance: IRBESARTAN
  3. LAMICTAL [Concomitant]
     Active Substance: LAMOTRIGINE
  4. ESOMEPRAZOLE [Concomitant]
     Active Substance: ESOMEPRAZOLE
  5. CENOBAMATE [Concomitant]
     Active Substance: CENOBAMATE

REACTIONS (2)
  - Hiccups [Recovered/Resolved]
  - Depressed mood [Not Recovered/Not Resolved]

NARRATIVE: CASE EVENT DATE: 20240315
